FAERS Safety Report 24218030 (Version 4)
Quarter: 2024Q3

REPORT INFORMATION
  Report Type: Report from Study
  Country: US (occurrence: US)
  Receive Date: 20240816
  Receipt Date: 20240919
  Transmission Date: 20241017
  Serious: Yes (Hospitalization)
  Sender: CALLIDITAS THERAPEUTICS
  Company Number: US-Calliditas-2024CAL01556

PATIENT
  Age: 61 Year
  Sex: Female
  Weight: 93.4 kg

DRUGS (8)
  1. TARPEYO [Suspect]
     Active Substance: BUDESONIDE
     Indication: IgA nephropathy
     Route: 048
     Dates: start: 20240719
  2. LOSARTAN [Concomitant]
     Active Substance: LOSARTAN\LOSARTAN POTASSIUM
     Dosage: LOWERED DOSAGE OF LOSARTAN FROM 100MG TO 50MG
  3. REGLAN [Concomitant]
     Active Substance: METOCLOPRAMIDE HYDROCHLORIDE
     Dosage: LOWERED DOSAGE OF LOSARTAN FROM 100MG TO 50MG
  4. PROBIOTICS NOS [Concomitant]
     Active Substance: PROBIOTICS NOS
     Dosage: LOWERED DOSAGE OF LOSARTAN FROM 100MG TO 50MG
  5. MAGNESIUM [Concomitant]
     Active Substance: MAGNESIUM
     Dosage: LOWERED DOSAGE OF LOSARTAN FROM 100MG TO 50MG
  6. AMLODIPINE [Concomitant]
     Active Substance: AMLODIPINE BESYLATE
     Dosage: LOWERED DOSAGE OF LOSARTAN FROM 100MG TO 50MG
  7. CARVEDILOL [Concomitant]
     Active Substance: CARVEDILOL
     Dosage: LOWERED DOSAGE OF LOSARTAN FROM 100MG TO 50MG
  8. OLMESARTAN [Concomitant]
     Active Substance: OLMESARTAN
     Dosage: LOWERED DOSAGE OF LOSARTAN FROM 100MG TO 50MG

REACTIONS (6)
  - Hypotension [Not Recovered/Not Resolved]
  - Product dose omission issue [Recovered/Resolved]
  - Hypertension [Not Recovered/Not Resolved]
  - Lower limb fracture [Recovering/Resolving]
  - Fall [Recovered/Resolved]
  - Ketoacidosis [Recovering/Resolving]

NARRATIVE: CASE EVENT DATE: 20240801
